FAERS Safety Report 23359929 (Version 3)
Quarter: 2024Q1

REPORT INFORMATION
  Report Type: Spontaneous
  Country: LT (occurrence: LT)
  Receive Date: 20240103
  Receipt Date: 20240112
  Transmission Date: 20240410
  Serious: Yes (Other)
  Sender: FDA-Public Use
  Company Number: LT-002147023-NVSC2023LT276394

PATIENT
  Age: 66 Year
  Sex: Female

DRUGS (6)
  1. PAZOPANIB [Suspect]
     Active Substance: PAZOPANIB
     Indication: Metastases to bone
     Dosage: 800 MG, UNKNOWN
     Route: 065
  2. PAZOPANIB [Suspect]
     Active Substance: PAZOPANIB
     Indication: Renal cell carcinoma
  3. PAZOPANIB [Suspect]
     Active Substance: PAZOPANIB
     Indication: Metastases to pelvis
  4. DENOSUMAB [Suspect]
     Active Substance: DENOSUMAB
     Indication: Metastases to bone
     Dosage: 120 MG, UNKNOWN
     Route: 065
  5. DENOSUMAB [Suspect]
     Active Substance: DENOSUMAB
     Indication: Renal cell carcinoma
  6. DENOSUMAB [Suspect]
     Active Substance: DENOSUMAB
     Indication: Metastases to pelvis

REACTIONS (1)
  - Osteonecrosis of jaw [Unknown]
